FAERS Safety Report 9562509 (Version 4)
Quarter: 2013Q4

REPORT INFORMATION
  Report Type: Spontaneous
  Country: FI (occurrence: FI)
  Receive Date: 20130927
  Receipt Date: 20131023
  Transmission Date: 20140711
  Serious: Yes (Disabling, Other)
  Sender: FDA-Public Use
  Company Number: FI-ABBVIE-13P-055-1069712-00

PATIENT
  Sex: Male

DRUGS (6)
  1. HUMIRA [Suspect]
     Indication: PSORIASIS
     Dates: start: 20120727
  2. HUMIRA [Suspect]
     Indication: PSORIATIC ARTHROPATHY
  3. PANADOL [Concomitant]
     Indication: BACK PAIN
  4. PANACOD [Concomitant]
     Indication: BACK PAIN
  5. ARCOXIA [Concomitant]
     Indication: PRODUCT USED FOR UNKNOWN INDICATION
  6. ARAVA [Concomitant]
     Indication: PRODUCT USED FOR UNKNOWN INDICATION
     Dosage: IN THE EVENING

REACTIONS (5)
  - Intervertebral disc protrusion [Unknown]
  - Intervertebral disc protrusion [Unknown]
  - Nerve injury [Unknown]
  - Pain in extremity [Unknown]
  - Back pain [Recovered/Resolved]
